FAERS Safety Report 26108969 (Version 1)
Quarter: 2025Q4

REPORT INFORMATION
  Report Type: Report from Study
  Country: US (occurrence: None)
  Receive Date: 20251201
  Receipt Date: 20251201
  Transmission Date: 20260118
  Serious: Yes (Death)
  Sender: UCB
  Company Number: US-UCBSA-2025075290

PATIENT

DRUGS (1)
  1. BRIVARACETAM [Suspect]
     Active Substance: BRIVARACETAM
     Indication: Epilepsy
     Dosage: 25 MILLIGRAM (10MG/ML X 2.5ML AM)

REACTIONS (2)
  - Dementia [Fatal]
  - Incorrect dose administered [Unknown]
